FAERS Safety Report 11290666 (Version 1)
Quarter: 2015Q3

REPORT INFORMATION
  Report Type: Spontaneous
  Country: US (occurrence: US)
  Receive Date: 20150722
  Receipt Date: 20150722
  Transmission Date: 20151125
  Serious: No
  Sender: FDA-Public Use
  Company Number: US-UNITED THERAPEUTICS-UNT-2014-011258

PATIENT
  Sex: Female
  Weight: 81.63 kg

DRUGS (2)
  1. REMODULIN [Suspect]
     Active Substance: TREPROSTINIL
     Indication: PULMONARY ARTERIAL HYPERTENSION
     Dosage: 0.11925 ?G/KG/MIN, CONTINUING
     Route: 058
     Dates: start: 20140527
  2. ASPIRIN                            /00002701/ [Concomitant]
     Active Substance: ASPIRIN
     Indication: PRODUCT USED FOR UNKNOWN INDICATION

REACTIONS (8)
  - Infusion site nodule [Unknown]
  - Infusion site pain [Recovering/Resolving]
  - Infusion site oedema [Unknown]
  - Infusion site infection [Recovering/Resolving]
  - Infusion site induration [Recovering/Resolving]
  - Infusion site haemorrhage [Recovering/Resolving]
  - Infusion site erythema [Recovering/Resolving]
  - Injection site discharge [Recovered/Resolved]

NARRATIVE: CASE EVENT DATE: 2014
